FAERS Safety Report 8402417-7 (Version None)
Quarter: 2012Q2

REPORT INFORMATION
  Report Type: 
  Country: None (occurrence: None)
  Receive Date: 20120529
  Receipt Date: 20081110
  Transmission Date: 20120825
  Serious: Yes (Death, Life-Threatening)
  Sender: FDA-Public Use
  Company Number: 004832

PATIENT
  Age: 82 Year
  Sex: Male
  Weight: 49 kg

DRUGS (11)
  1. BUFFERIN [Suspect]
     Indication: CORONARY ARTERY STENOSIS
     Dosage: 81 MG  81 MG, QD,ORAL
     Route: 048
     Dates: start: 20080614, end: 20081027
  2. RIMATIL (BUCILLAMINE) [Concomitant]
  3. DIOVAN [Concomitant]
  4. PLAVIX [Suspect]
     Indication: CORONARY ARTERY STENOSIS
     Dosage: 75 MG, QD; ORAL
     Route: 048
     Dates: start: 20080614, end: 20081027
  5. SIGMART (NICORANDIL) [Concomitant]
  6. MUCOSTA (REBAMIPIDE) [Concomitant]
  7. LANSOPRAZOLE [Concomitant]
  8. PLETAL [Suspect]
     Indication: CORONARY ARTERY STENOSIS
     Dosage: 100 MG, BID; ORAL
     Route: 048
     Dates: start: 20080623, end: 20081027
  9. OPALMON (LIMAPROST ALFADEX) [Suspect]
     Indication: CORONARY ARTERY STENOSIS
     Dosage: 5 MG, TID; ORAL
     Route: 048
     Dates: start: 20080620, end: 20081027
  10. ISOSORBIDE MONONITRATE [Concomitant]
  11. MOBIC [Concomitant]

REACTIONS (5)
  - POST PROCEDURAL HAEMORRHAGE [None]
  - COMA SCALE ABNORMAL [None]
  - CEREBRAL HAEMORRHAGE [None]
  - INTRACRANIAL PRESSURE INCREASED [None]
  - ENCEPHALOCELE [None]
